FAERS Safety Report 6241689-4 (Version None)
Quarter: 2009Q2

REPORT INFORMATION
  Report Type: 
  Country: None (occurrence: None)
  Receive Date: 20090623
  Receipt Date: 20090611
  Transmission Date: 20091009
  Serious: Yes (Hospitalization, Congenital Anomaly)
  Sender: FDA-Public Use
  Company Number: US-ELI_LILLY_AND_COMPANY-US200906003213

PATIENT
  Sex: Female

DRUGS (2)
  1. PROZAC [Suspect]
     Dosage: UNK, UNKNOWN
     Route: 064
  2. XYREM [Concomitant]
     Dosage: UNK, UNKNOWN
     Route: 065

REACTIONS (7)
  - CRYING [None]
  - DRUG EXPOSURE DURING PREGNANCY [None]
  - DYSMORPHISM [None]
  - HYPERTONIA NEONATAL [None]
  - IRRITABILITY [None]
  - NEONATAL DISORDER [None]
  - WITHDRAWAL SYNDROME [None]
